FAERS Safety Report 13426710 (Version 1)
Quarter: 2017Q2

REPORT INFORMATION
  Report Type: Spontaneous
  Country: US (occurrence: US)
  Receive Date: 20170411
  Receipt Date: 20170411
  Transmission Date: 20170830
  Serious: Yes (Other)
  Sender: FDA-Public Use
  Company Number: None

PATIENT
  Age: 41 Year
  Sex: Male
  Weight: 49.94 kg

DRUGS (4)
  1. GNC MEGAMEN PERFORMANCE + VITALITY DIETARY SUPPLEMENT [Concomitant]
  2. TYLENOL [Concomitant]
     Active Substance: ACETAMINOPHEN
  3. PANTOPRAZOLE SOD DR 40MG TAB [Suspect]
     Active Substance: PANTOPRAZOLE SODIUM
     Indication: DYSPEPSIA
     Dosage: ?          QUANTITY:I FKGL?/F;?
     Route: 048
     Dates: start: 20170223
  4. PANTOPRAZOLE SOD DR 40MG TAB [Suspect]
     Active Substance: PANTOPRAZOLE SODIUM
     Indication: ABDOMINAL PAIN UPPER
     Dosage: ?          QUANTITY:I FKGL?/F;?
     Route: 048
     Dates: start: 20170223

REACTIONS (5)
  - Disturbance in attention [None]
  - Headache [None]
  - Crying [None]
  - Depression [None]
  - Depressed mood [None]

NARRATIVE: CASE EVENT DATE: 20170318
